FAERS Safety Report 8778281 (Version 1)
Quarter: 2012Q4

REPORT INFORMATION
  Report Type: 
  Country: US (occurrence: US)
  Receive Date: 20120912
  Receipt Date: 20120912
  Transmission Date: 20130627
  Serious: No
  Sender: FDA-Public Use
  Company Number: US-ASTRAZENECA-2012SE60974

PATIENT
  Age: 26 Year
  Sex: Female
  Weight: 68 kg

DRUGS (6)
  1. BUDESONIDE [Suspect]
     Indication: COLITIS ULCERATIVE
     Route: 048
     Dates: start: 201203
  2. BUDESONIDE [Suspect]
     Indication: COLITIS ULCERATIVE
     Route: 048
  3. BUDESONIDE [Suspect]
     Indication: COLITIS ULCERATIVE
     Route: 048
     Dates: start: 201207
  4. EFFEXOR [Concomitant]
  5. AMRIX [Concomitant]
  6. NORETHINDRONE [Concomitant]

REACTIONS (2)
  - Weight increased [Not Recovered/Not Resolved]
  - Off label use [Unknown]
